FAERS Safety Report 5202388-0 (Version None)
Quarter: 2006Q4

REPORT INFORMATION
  Report Type: 
  Country: None (occurrence: None)
  Receive Date: 20061012
  Receipt Date: 20060714
  Transmission Date: 20070319
  Serious: No
  Sender: FDA-Public Use
  Company Number: 2006S1000135

PATIENT
  Sex: 0

DRUGS (1)
  1. CUBICIN [Suspect]
     Dates: start: 20060601

REACTIONS (1)
  - BLOOD CREATINE PHOSPHOKINASE INCREASED [None]
